FAERS Safety Report 5811665-1 (Version None)
Quarter: 2008Q3

REPORT INFORMATION
  Report Type: 
  Country: None (occurrence: None)
  Receive Date: 20080716
  Receipt Date: 20080708
  Transmission Date: 20090109
  Serious: Yes (Hospitalization, Disabling)
  Sender: FDA-Public Use
  Company Number: PHHO2008DE08033

PATIENT
  Sex: Male
  Weight: 79 kg

DRUGS (1)
  1. ZOLEDRONIC ACID [Suspect]
     Indication: MULTIPLE MYELOMA
     Dosage: UNK
     Route: 042
     Dates: end: 20071201

REACTIONS (5)
  - GINGIVAL OPERATION [None]
  - OSTEONECROSIS [None]
  - PURULENT DISCHARGE [None]
  - SURGERY [None]
  - TOOTH EXTRACTION [None]
